FAERS Safety Report 18481119 (Version 2)
Quarter: 2020Q4

REPORT INFORMATION
  Report Type: Spontaneous
  Country: CA (occurrence: CA)
  Receive Date: 20201109
  Receipt Date: 20201113
  Transmission Date: 20210114
  Serious: Yes (Other)
  Sender: FDA-Public Use
  Company Number: CA-TEVA-2020-CA-1845746

PATIENT
  Age: 67 Year
  Sex: Female

DRUGS (3)
  1. CALCIUM TABLET WITH VITAMIN D [Concomitant]
     Dosage: 1 DOSAGE FORMS DAILY; MORNING
  2. MSM [Concomitant]
     Active Substance: DIMETHYL SULFONE
     Dosage: MORNING AND NIGHT
  3. TEVA RISEDRONATE 35MG [Suspect]
     Active Substance: RISEDRONATE SODIUM
     Indication: OSTEOPOROSIS
     Dosage: MORNING
     Dates: start: 20201014, end: 202010

REACTIONS (9)
  - Gastrointestinal disorder [Unknown]
  - Flatulence [Unknown]
  - Abnormal faeces [Not Recovered/Not Resolved]
  - Anal incontinence [Unknown]
  - Gastrointestinal pain [Recovered/Resolved]
  - Defaecation urgency [Unknown]
  - Rectal haemorrhage [Recovered/Resolved]
  - Haematochezia [Recovered/Resolved]
  - Malabsorption [Unknown]

NARRATIVE: CASE EVENT DATE: 2020
